FAERS Safety Report 4514680-3 (Version None)
Quarter: 2004Q4

REPORT INFORMATION
  Report Type: 
  Country: None (occurrence: None)
  Receive Date: 20041126
  Receipt Date: 20041110
  Transmission Date: 20050328
  Serious: Yes (Hospitalization)
  Sender: FDA-Public Use
  Company Number: 9305

PATIENT
  Age: 60 Year
  Sex: Female

DRUGS (9)
  1. CYCLOPHOSPHAMIDE [Suspect]
     Indication: BREAST CANCER
     Dosage: 1400 MG PER_CYCLE IV
     Route: 042
     Dates: start: 20040423
  2. METHOTREXATE [Suspect]
     Indication: BREAST CANCER
     Dosage: 95 MG PER_CYCLE IV
     Route: 042
     Dates: start: 20040423
  3. FLUOROURACIL [Suspect]
     Indication: BREAST CANCER
     Dosage: 100 MG PER_CYCLE IV
     Route: 042
     Dates: start: 20040423
  4. ZOLEDRONIC ACID [Concomitant]
  5. WARFARIN SODIUM [Concomitant]
  6. DOMERIDONE [Concomitant]
  7. DEXAMETHASONE [Concomitant]
  8. GRANISETRON [Concomitant]
  9. EPIRUBICIN [Concomitant]

REACTIONS (6)
  - BLOOD PRESSURE SYSTOLIC DECREASED [None]
  - HAEMOGLOBIN DECREASED [None]
  - MALAISE [None]
  - NEUTROPENIC SEPSIS [None]
  - PERIPHERAL COLDNESS [None]
  - WHITE BLOOD CELL COUNT DECREASED [None]
